FAERS Safety Report 7600158 (Version 3)
Quarter: 2013Q3

REPORT INFORMATION
  Report Type: Spontaneous
  Country: US (occurrence: US)
  Receive Date: 20100921
  Receipt Date: 20130816
  Transmission Date: 20140515
  Serious: Yes (Other)
  Sender: FDA-Public Use
  Company Number: US-ELI_LILLY_AND_COMPANY-US201009004495

PATIENT
  Age: 52 Year
  Sex: Female

DRUGS (4)
  1. DULOXETINE HYDROCHLORIDE [Suspect]
     Dosage: 60 MG, DAILY (1/D)
  2. DULOXETINE HYDROCHLORIDE [Suspect]
     Dosage: 1 D/F, DAILY (1/D)
  3. METHOTREXATE [Concomitant]
  4. INFLIXIMAB [Concomitant]
     Dosage: UNK, MONTHLY (1/M)

REACTIONS (1)
  - Hepatitis [Recovered/Resolved]
